FAERS Safety Report 7535514-9 (Version None)
Quarter: 2011Q2

REPORT INFORMATION
  Report Type: 
  Country: None (occurrence: None)
  Receive Date: 20110609
  Receipt Date: 20110131
  Transmission Date: 20111010
  Serious: Yes (Other)
  Sender: FDA-Public Use
  Company Number: US-BAYER-2011-013683

PATIENT
  Sex: Female
  Weight: 77.098 kg

DRUGS (10)
  1. YAZ [Suspect]
     Indication: GENITAL HAEMORRHAGE
  2. YASMIN [Suspect]
     Indication: CONTRACEPTION
     Dosage: UNK
     Dates: start: 20020101, end: 20080101
  3. MIRENA [Concomitant]
     Route: 015
  4. NSAID'S [Concomitant]
     Indication: HEADACHE
  5. MULTI-VITAMIN [Concomitant]
  6. YASMIN [Suspect]
     Indication: GENITAL HAEMORRHAGE
  7. YAZ [Suspect]
     Indication: CONTRACEPTION
     Dosage: UNK
     Dates: start: 20020101, end: 20080101
  8. YAZ [Suspect]
     Indication: PREMENSTRUAL SYNDROME
  9. YAZ [Suspect]
     Indication: MENSTRUAL CYCLE MANAGEMENT
  10. YASMIN [Suspect]
     Indication: PREMENSTRUAL SYNDROME

REACTIONS (8)
  - CHOLECYSTITIS CHRONIC [None]
  - BILIARY DYSKINESIA [None]
  - GALLBLADDER DISORDER [None]
  - GALLBLADDER INJURY [None]
  - PAIN [None]
  - ABDOMINAL PAIN UPPER [None]
  - VOMITING [None]
  - EMOTIONAL DISTRESS [None]
